FAERS Safety Report 5624580-3 (Version None)
Quarter: 2008Q1

REPORT INFORMATION
  Report Type: 
  Country: None (occurrence: None)
  Receive Date: 20080213
  Receipt Date: 20080130
  Transmission Date: 20080703
  Serious: Yes (Hospitalization)
  Sender: FDA-Public Use
  Company Number: US-ELI_LILLY_AND_COMPANY-US200801006864

PATIENT
  Sex: Female

DRUGS (6)
  1. FORTEO [Suspect]
     Indication: OSTEOPOROSIS
     Dates: start: 20070701
  2. FORTEO [Suspect]
     Dates: start: 20080101
  3. CALCIUM CARBONATE [Concomitant]
     Indication: OSTEOPOROSIS
  4. SYNTHROID [Concomitant]
     Indication: THYROID DISORDER
  5. LOPRESSOR [Concomitant]
     Indication: BLOOD PRESSURE
  6. AVALIDE [Concomitant]
     Indication: BLOOD PRESSURE

REACTIONS (2)
  - INFLUENZA [None]
  - PNEUMONIA [None]
